FAERS Safety Report 13666733 (Version 1)
Quarter: 2017Q2

REPORT INFORMATION
  Report Type: Spontaneous
  Country: US (occurrence: US)
  Receive Date: 20170619
  Receipt Date: 20170619
  Transmission Date: 20170830
  Serious: No
  Sender: FDA-Public Use
  Company Number: US-ROCHE-1308948

PATIENT
  Sex: Female

DRUGS (1)
  1. XELODA [Suspect]
     Active Substance: CAPECITABINE
     Indication: NEUROENDOCRINE TUMOUR
     Dosage: 4X500MG TABS IN THE  AM,  3X500MG TABS IN THE  PM, 14 DAYS ON 7 OFF
     Route: 048
     Dates: start: 20131023

REACTIONS (1)
  - Visual acuity reduced [Unknown]
